FAERS Safety Report 11633448 (Version 5)
Quarter: 2015Q4

REPORT INFORMATION
  Report Type: Report from Study
  Country: FR (occurrence: FR)
  Receive Date: 20151015
  Receipt Date: 20151027
  Transmission Date: 20160304
  Serious: Yes (Death, Life-Threatening)
  Sender: FDA-Public Use
  Company Number: PHHO2015FR015306

PATIENT
  Age: 92 Year
  Sex: Male
  Weight: 72 kg

DRUGS (11)
  1. FUROSEMIDE. [Suspect]
     Active Substance: FUROSEMIDE
     Indication: CARDIAC FAILURE ACUTE
     Dosage: 20 MG, (6 TIMES A DAY, 3X40 MG)
     Route: 065
     Dates: start: 20151006, end: 20151008
  2. LORMETAZEPAM [Concomitant]
     Active Substance: LORMETAZEPAM
     Indication: BIPOLAR DISORDER
     Dosage: 7 MG, QD (EVENING)
     Route: 048
     Dates: end: 20151007
  3. ALIMEMAZINE [Concomitant]
     Active Substance: TRIMEPRAZINE
     Indication: BIPOLAR DISORDER
     Dosage: 7.5 MG, QD (EVENING)
     Route: 048
     Dates: end: 20151007
  4. VENLAFAXIN [Concomitant]
     Active Substance: VENLAFAXINE HYDROCHLORIDE
     Indication: BIPOLAR DISORDER
     Dosage: 37.5 MG, BID
     Route: 048
     Dates: end: 20151008
  5. POTASSIUM [Concomitant]
     Active Substance: POTASSIUM
     Indication: HYPOKALAEMIA
     Dosage: 1200 MG, TID
     Route: 048
     Dates: start: 20151007, end: 20151008
  6. ATORVASTATIN [Concomitant]
     Active Substance: ATORVASTATIN
     Indication: DYSLIPIDAEMIA
     Dosage: 10 MG, QD (AFTERNOON)
     Route: 048
     Dates: end: 20151007
  7. INSULIN GLARGINE [Concomitant]
     Active Substance: INSULIN GLARGINE
     Indication: DIABETES MELLITUS
     Dosage: 25 IU, QD (EVENING)
     Route: 065
  8. POTASSIUM [Concomitant]
     Active Substance: POTASSIUM
     Indication: DIURETIC THERAPY
  9. NACL [Suspect]
     Active Substance: SODIUM CHLORIDE
     Indication: DEHYDRATION
     Dosage: 1 L, QD
     Route: 042
     Dates: end: 20151010
  10. NACL [Suspect]
     Active Substance: SODIUM CHLORIDE
     Indication: SEPSIS
  11. DIGOXIN. [Concomitant]
     Active Substance: DIGOXIN
     Indication: ARRHYTHMIA
     Dosage: 0.125 MG, QD (MORNING)
     Route: 048
     Dates: end: 20151007

REACTIONS (2)
  - Cardiac failure [Fatal]
  - Sepsis [Fatal]

NARRATIVE: CASE EVENT DATE: 20151008
